FAERS Safety Report 5614939-2 (Version None)
Quarter: 2008Q1

REPORT INFORMATION
  Report Type: 
  Country: None (occurrence: None)
  Receive Date: 20080204
  Receipt Date: 20080204
  Transmission Date: 20080703
  Serious: No
  Sender: FDA-Public Use
  Company Number: None

PATIENT
  Sex: Male
  Weight: 90.2658 kg

DRUGS (2)
  1. GENERIC PERCODAN(OXYCODONE 0.38 / OXYCODONE HCL 4.5 /ASA 325) [Suspect]
     Indication: GLOSSITIS
     Dosage: 1 Q 3HRS PO
     Route: 048
  2. . [Concomitant]

REACTIONS (3)
  - GLOSSITIS [None]
  - PHARMACEUTICAL PRODUCT COMPLAINT [None]
  - THERAPEUTIC RESPONSE UNEXPECTED WITH DRUG SUBSTITUTION [None]
